FAERS Safety Report 6671611-8 (Version None)
Quarter: 2010Q2

REPORT INFORMATION
  Report Type: 
  Country: None (occurrence: None)
  Receive Date: 20100407
  Receipt Date: 20100324
  Transmission Date: 20101027
  Serious: Yes (Death, Other)
  Sender: FDA-Public Use
  Company Number: NO-GENENTECH-299559

PATIENT
  Sex: Male

DRUGS (14)
  1. MABTHERA [Suspect]
     Indication: DIFFUSE LARGE B-CELL LYMPHOMA
     Dosage: 1 DF, Q3W
     Route: 065
     Dates: start: 20090611, end: 20090723
  2. NEULASTA [Suspect]
     Indication: CHEMOTHERAPY
     Dosage: 1 DF, Q3W
     Route: 065
  3. CYCLOPHOSPHAMIDE [Suspect]
     Indication: DIFFUSE LARGE B-CELL LYMPHOMA
     Dosage: 1 DF, Q3W
     Route: 065
     Dates: start: 20090611, end: 20090723
  4. MITOXANTRONE [Concomitant]
     Indication: DIFFUSE LARGE B-CELL LYMPHOMA
     Dosage: 1 DF, Q3W
     Route: 065
     Dates: start: 20090611, end: 20090723
  5. VINCRISTINE [Concomitant]
     Indication: DIFFUSE LARGE B-CELL LYMPHOMA
     Dosage: 1 DF, Q3W
     Route: 065
     Dates: start: 20090611, end: 20090723
  6. SENDOXAN [Concomitant]
     Indication: DRUG USE FOR UNKNOWN INDICATION
     Dosage: UNK
     Route: 065
  7. PREDNISOLONE [Concomitant]
     Indication: DIFFUSE LARGE B-CELL LYMPHOMA
     Dosage: 1 DF, Q3W
     Route: 065
     Dates: start: 20090611, end: 20090909
  8. MERONEM [Concomitant]
     Indication: DRUG USE FOR UNKNOWN INDICATION
     Dosage: UNK
     Dates: start: 20090919
  9. DIFLUCAN [Concomitant]
     Indication: DRUG USE FOR UNKNOWN INDICATION
     Dosage: UNK
     Dates: start: 20090916
  10. BENSYLPENICILLIN [Concomitant]
     Indication: PNEUMONIA
     Dosage: UNK
     Route: 042
     Dates: start: 20090216
  11. ETOPOSIDE [Concomitant]
     Indication: DIFFUSE LARGE B-CELL LYMPHOMA
     Dosage: 1 DF, UNK
     Dates: start: 20090909, end: 20090909
  12. CYTARABINE [Concomitant]
     Indication: DIFFUSE LARGE B-CELL LYMPHOMA
     Dosage: 1 DF, UNK
     Dates: start: 20090909, end: 20090909
  13. GARAMYCIN [Concomitant]
     Indication: PNEUMONIA
     Dosage: UNK
     Route: 042
     Dates: start: 20090916
  14. SULFAMETHOXAZOLE AND TRIMETHOPRIM [Concomitant]
     Indication: DRUG USE FOR UNKNOWN INDICATION
     Dosage: UNK
     Dates: start: 20091001

REACTIONS (3)
  - DEATH [None]
  - DRUG INTERACTION [None]
  - PNEUMONITIS [None]
